FAERS Safety Report 21451417 (Version 6)
Quarter: 2022Q4

REPORT INFORMATION
  Report Type: Report from Study
  Country: IT (occurrence: IT)
  Receive Date: 20221013
  Receipt Date: 20221219
  Transmission Date: 20230113
  Serious: Yes (Hospitalization)
  Sender: FDA-Public Use
  Company Number: IT-SA-SAC20221007000244

PATIENT
  Age: 60 Year
  Sex: Female

DRUGS (17)
  1. ISATUXIMAB [Suspect]
     Active Substance: ISATUXIMAB
     Indication: Plasma cell myeloma
     Dosage: 570 MG
     Route: 065
     Dates: start: 20210930, end: 20210930
  2. ISATUXIMAB [Suspect]
     Active Substance: ISATUXIMAB
     Dosage: 570 MG
     Route: 065
     Dates: start: 20220901, end: 20220901
  3. CARFILZOMIB [Suspect]
     Active Substance: CARFILZOMIB
     Indication: Plasma cell myeloma
     Dosage: 90.7 MG
     Dates: start: 20210930, end: 20210930
  4. CARFILZOMIB [Suspect]
     Active Substance: CARFILZOMIB
     Dosage: 45.4 MG
     Dates: start: 20220901, end: 20220901
  5. LENALIDOMIDE [Suspect]
     Active Substance: LENALIDOMIDE
     Indication: Plasma cell myeloma
     Dosage: 25 MG
     Dates: start: 20210930, end: 20210930
  6. LENALIDOMIDE [Suspect]
     Active Substance: LENALIDOMIDE
     Dosage: 25 MG
     Dates: start: 20220907, end: 20220907
  7. DEXAMETHASONE [Suspect]
     Active Substance: DEXAMETHASONE
     Indication: Plasma cell myeloma
     Dosage: 40 MG
     Dates: start: 20210930, end: 20210930
  8. DEXAMETHASONE [Suspect]
     Active Substance: DEXAMETHASONE
     Dosage: 40 MG
     Dates: start: 20220901, end: 20220901
  9. BACTRIM [Concomitant]
     Active Substance: SULFAMETHOXAZOLE\TRIMETHOPRIM
     Indication: Prophylaxis
     Dosage: UNK
     Dates: start: 20220621
  10. BACTRIM [Concomitant]
     Active Substance: SULFAMETHOXAZOLE\TRIMETHOPRIM
     Dosage: UNK
     Dates: start: 20221007
  11. ACYCLOVIR [Concomitant]
     Active Substance: ACYCLOVIR
     Indication: Prophylaxis
     Dosage: UNK
     Dates: start: 20220621
  12. ACYCLOVIR [Concomitant]
     Active Substance: ACYCLOVIR
     Dosage: UNK
     Dates: start: 20221007
  13. PANTOPRAZOLE SODIUM [Concomitant]
     Active Substance: PANTOPRAZOLE SODIUM
     Indication: Prophylaxis
     Dosage: UNK
     Dates: start: 20220621
  14. PANTOPRAZOLE SODIUM [Concomitant]
     Active Substance: PANTOPRAZOLE SODIUM
     Dosage: UNK
     Dates: start: 20221007
  15. ASPIRIN [Concomitant]
     Active Substance: ASPIRIN
     Indication: Prophylaxis
     Dosage: UNK
     Dates: start: 20220621
  16. ENTECAVIR [Concomitant]
     Active Substance: ENTECAVIR
     Indication: Viral infection
     Dosage: UNK
     Dates: start: 20220413
  17. BISOPROLOL [Concomitant]
     Active Substance: BISOPROLOL
     Indication: Sinus tachycardia
     Dosage: UNK
     Dates: start: 20220120

REACTIONS (2)
  - Pneumonia pneumococcal [Recovered/Resolved]
  - Pneumonia [Recovered/Resolved]

NARRATIVE: CASE EVENT DATE: 20221002
